FAERS Safety Report 20825399 (Version 4)
Quarter: 2022Q3

REPORT INFORMATION
  Report Type: Spontaneous
  Country: DE (occurrence: DE)
  Receive Date: 20220513
  Receipt Date: 20220829
  Transmission Date: 20221026
  Serious: Yes (Hospitalization, Other)
  Sender: FDA-Public Use
  Company Number: DE-009507513-2110DEU006256

PATIENT

DRUGS (10)
  1. PREGABALIN [Suspect]
     Active Substance: PREGABALIN
     Indication: Epilepsy
     Dosage: 350 MG, QD
     Route: 048
     Dates: start: 20201222
  2. PREGABALIN [Suspect]
     Active Substance: PREGABALIN
     Indication: Depression
  3. RAMIPRIL [Suspect]
     Active Substance: RAMIPRIL
     Indication: Hypertension
     Dosage: 2.5 MG, QD
     Route: 048
     Dates: start: 20210319
  4. ZEPATIER [Suspect]
     Active Substance: ELBASVIR\GRAZOPREVIR
     Indication: Chronic hepatitis C
     Dosage: 100MG/50MG, QD
     Route: 048
     Dates: start: 20210930, end: 20211229
  5. ZEPATIER [Suspect]
     Active Substance: ELBASVIR\GRAZOPREVIR
     Dosage: 100MG/50MG, QD
     Route: 048
     Dates: start: 20210930, end: 20211229
  6. LEVOMETHADONE [Suspect]
     Active Substance: LEVOMETHADONE
     Indication: Drug withdrawal maintenance therapy
     Dosage: 90 MG, QD
     Route: 048
     Dates: start: 20201222
  7. PANTOPRAZOLE [Suspect]
     Active Substance: PANTOPRAZOLE
     Indication: Chronic gastritis
     Dosage: 80 MG, BID
     Route: 048
     Dates: start: 20211022
  8. PANTOPRAZOLE [Suspect]
     Active Substance: PANTOPRAZOLE
     Route: 048
     Dates: start: 20211022
  9. PANTOPRAZOLE [Suspect]
     Active Substance: PANTOPRAZOLE
     Dosage: 40 MG DAILY
     Route: 048
     Dates: start: 20211022
  10. METAMIZOLE [Suspect]
     Active Substance: METAMIZOLE
     Indication: Product used for unknown indication
     Route: 065
     Dates: start: 20220315

REACTIONS (14)
  - Abdominal pain upper [Recovered/Resolved]
  - Anal haemorrhage [Not Recovered/Not Resolved]
  - Coronavirus infection [Recovered/Resolved]
  - Diabetes mellitus [Not Recovered/Not Resolved]
  - Decreased appetite [Not Recovered/Not Resolved]
  - Loss of consciousness [Recovered/Resolved]
  - Ligament sprain [Recovering/Resolving]
  - Leukocytosis [Recovered/Resolved]
  - Internal fixation of fracture [Recovered/Resolved]
  - Urinary tract infection [Not Recovered/Not Resolved]
  - Vomiting [Recovering/Resolving]
  - Headache [Unknown]
  - Laboratory test abnormal [Unknown]
  - Vitamin D deficiency [Unknown]

NARRATIVE: CASE EVENT DATE: 20211007
